FAERS Safety Report 11471180 (Version 2)
Quarter: 2015Q3

REPORT INFORMATION
  Report Type: Spontaneous
  Country: US (occurrence: US)
  Receive Date: 20150903
  Receipt Date: 20150903
  Transmission Date: 20151125
  Serious: No
  Sender: FDA-Public Use
  Company Number: US-ELI_LILLY_AND_COMPANY-US201112005539

PATIENT
  Sex: Female
  Weight: 54.42 kg

DRUGS (4)
  1. MEDROL [Concomitant]
     Active Substance: METHYLPREDNISOLONE
  2. CYMBALTA [Suspect]
     Active Substance: DULOXETINE HYDROCHLORIDE
     Dosage: 60 MG, QD
     Route: 048
     Dates: start: 20111213
  3. CYMBALTA [Suspect]
     Active Substance: DULOXETINE HYDROCHLORIDE
     Indication: NEURALGIA
     Dosage: 30 MG, QD
  4. PERCOCET [Concomitant]
     Active Substance: ACETAMINOPHEN\OXYCODONE HYDROCHLORIDE

REACTIONS (11)
  - Tinnitus [Unknown]
  - Dry mouth [Unknown]
  - Dysphonia [Unknown]
  - Amnesia [Unknown]
  - Lip exfoliation [Unknown]
  - Malaise [Unknown]
  - Hyperhidrosis [Unknown]
  - Dysuria [Unknown]
  - Disturbance in attention [Unknown]
  - Ear pain [Unknown]
  - Off label use [Recovered/Resolved]
